FAERS Safety Report 21559078 (Version 1)
Quarter: 2022Q4

REPORT INFORMATION
  Report Type: Spontaneous
  Country: US (occurrence: US)
  Receive Date: 20221107
  Receipt Date: 20221107
  Transmission Date: 20230113
  Serious: No
  Sender: FDA-Public Use
  Company Number: US-VIIV HEALTHCARE LIMITED-US2022AMR156023

PATIENT
  Age: 33 Year
  Sex: Female

DRUGS (2)
  1. RILPIVIRINE [Suspect]
     Active Substance: RILPIVIRINE
     Indication: HIV infection
     Dosage: UNK UNK, Z (600 MG CABOTEGRAVIR, 900 MG RILPIVIRINE EVERY 2 MONTHS)
     Route: 065
     Dates: start: 202207
  2. CABOTEGRAVIR [Suspect]
     Active Substance: CABOTEGRAVIR
     Indication: HIV infection
     Dosage: UNK UNK, Z (600 MG CABOTEGRAVIR, 900 MG RILPIVIRINE EVERY 2 MONTHS)
     Route: 065
     Dates: start: 202207

REACTIONS (2)
  - Arthralgia [Not Recovered/Not Resolved]
  - CD4 lymphocytes decreased [Unknown]

NARRATIVE: CASE EVENT DATE: 20220101
